FAERS Safety Report 21583134 (Version 1)
Quarter: 2022Q4

REPORT INFORMATION
  Report Type: Spontaneous
  Country: US (occurrence: None)
  Receive Date: 20221110
  Receipt Date: 20221110
  Transmission Date: 20230113
  Serious: Yes (Death)
  Sender: FDA-Public Use
  Company Number: None

PATIENT
  Age: 88 Year
  Sex: Male

DRUGS (1)
  1. APIXABAN [Suspect]
     Active Substance: APIXABAN
     Indication: Atrial fibrillation
     Dosage: TAB BID PO?
     Route: 048
     Dates: start: 20220101, end: 20220819

REACTIONS (2)
  - Haemorrhage intracranial [None]
  - Fall [None]

NARRATIVE: CASE EVENT DATE: 20220819
